FAERS Safety Report 7713214-X (Version None)
Quarter: 2011Q3

REPORT INFORMATION
  Report Type: 
  Country: None (occurrence: None)
  Receive Date: 20110826
  Receipt Date: 20100714
  Transmission Date: 20111222
  Serious: No
  Sender: FDA-Public Use
  Company Number: US-BAYER-201028409NA

PATIENT
  Age: 71 Year
  Sex: Female

DRUGS (2)
  1. TERAZOSIN HCL [Concomitant]
     Dosage: 4 MG, QD
  2. CIPROFLOXACIN [Suspect]
     Indication: URINARY TRACT INFECTION
     Dosage: 500 MG, BID
     Route: 048
     Dates: start: 20100706

REACTIONS (1)
  - DIARRHOEA [None]
